FAERS Safety Report 4868382-4 (Version None)
Quarter: 2005Q4

REPORT INFORMATION
  Report Type: 
  Country: None (occurrence: None)
  Receive Date: 20051229
  Receipt Date: 20041203
  Transmission Date: 20060501
  Serious: Yes (Other)
  Sender: FDA-Public Use
  Company Number: GB-GLAXOSMITHKLINE-B0360758A

PATIENT
  Sex: Female

DRUGS (10)
  1. PAROXETINE HYDROCHLORIDE [Suspect]
     Route: 065
  2. BENDROFLUAZIDE [Concomitant]
  3. LANSOPRAZOLE [Concomitant]
  4. PIOGLITAZONE HCL [Concomitant]
  5. GLICLAZIDE [Concomitant]
  6. METFORMIN [Concomitant]
  7. INSULIN [Concomitant]
  8. TRIFLUOPERAZINE HCL [Concomitant]
  9. THYROXINE [Concomitant]
  10. METOCLOPRAMIDE [Concomitant]

REACTIONS (11)
  - CHEMICAL POISONING [None]
  - CONFUSIONAL STATE [None]
  - DEMENTIA [None]
  - DEPRESSED MOOD [None]
  - FALL [None]
  - HOMICIDAL IDEATION [None]
  - ILL-DEFINED DISORDER [None]
  - INTENTIONAL OVERDOSE [None]
  - INTENTIONAL SELF-INJURY [None]
  - SELF MUTILATION [None]
  - SUICIDAL IDEATION [None]
